FAERS Safety Report 7064753-9 (Version None)
Quarter: 2010Q4

REPORT INFORMATION
  Report Type: 
  Country: None (occurrence: None)
  Receive Date: 20101027
  Receipt Date: 20101013
  Transmission Date: 20110411
  Serious: Yes (Hospitalization)
  Sender: FDA-Public Use
  Company Number: US-AMGEN-USASP2010000378

PATIENT

DRUGS (3)
  1. NPLATE [Suspect]
     Indication: IDIOPATHIC THROMBOCYTOPENIC PURPURA
     Dates: start: 20091210
  2. IMMUNOGLOBULINS NOS [Concomitant]
     Indication: IDIOPATHIC THROMBOCYTOPENIC PURPURA
     Dosage: UNK
     Route: 042
     Dates: start: 20090101
  3. PROMACTA [Concomitant]
     Indication: IDIOPATHIC THROMBOCYTOPENIC PURPURA
     Dosage: 75 MG, UNK
     Dates: start: 20090101

REACTIONS (6)
  - ASTHENIA [None]
  - CARDIAC FAILURE CONGESTIVE [None]
  - IDIOPATHIC THROMBOCYTOPENIC PURPURA [None]
  - LEUKOCYTOSIS [None]
  - MALAISE [None]
  - TROPONIN INCREASED [None]
